FAERS Safety Report 6806831-2 (Version None)
Quarter: 2010Q2

REPORT INFORMATION
  Report Type: 
  Country: None (occurrence: None)
  Receive Date: 20100629
  Receipt Date: 20100617
  Transmission Date: 20101027
  Serious: No
  Sender: FDA-Public Use
  Company Number: KR-ELI_LILLY_AND_COMPANY-KR201006004962

PATIENT
  Age: 41 Year
  Sex: Male

DRUGS (1)
  1. CIALIS [Suspect]
     Indication: BENIGN PROSTATIC HYPERPLASIA
     Dosage: 5 MG, DAILY (1/D) IN THE MORNING
     Route: 048

REACTIONS (4)
  - DRUG INEFFECTIVE [None]
  - HEADACHE [None]
  - HOT FLUSH [None]
  - OCULAR HYPERAEMIA [None]
